FAERS Safety Report 14450994 (Version 1)
Quarter: 2018Q1

REPORT INFORMATION
  Report Type: Spontaneous
  Country: US (occurrence: US)
  Receive Date: 20180129
  Receipt Date: 20180129
  Transmission Date: 20180509
  Serious: No
  Sender: FDA-Public Use
  Company Number: US-PFIZER INC-2018034937

PATIENT
  Sex: Female

DRUGS (1)
  1. NEURONTIN [Suspect]
     Active Substance: GABAPENTIN
     Indication: NEURALGIA
     Dosage: 4000 MG, DAILY (400MG; THREE PILLS IN THE MORNING THREE PILLS IN THE AFTERNOON AND 4 PILLS AT NIGHT)
     Dates: end: 201711

REACTIONS (3)
  - Drug ineffective [Unknown]
  - Nerve compression [Unknown]
  - Overdose [Unknown]

NARRATIVE: CASE EVENT DATE: 2017
